FAERS Safety Report 8694235 (Version 2)
Quarter: 2013Q1

REPORT INFORMATION
  Report Type: Spontaneous
  Country: US (occurrence: None)
  Receive Date: 20120711
  Receipt Date: 20121102
  Transmission Date: 20140127
  Serious: Yes (Hospitalization)
  Sender: FDA-Public Use
  Company Number: 2012PROUSA01591

PATIENT
  Age: 64 Year
  Sex: Male
  Weight: 91.2 kg

DRUGS (6)
  1. PROVENGE [Suspect]
     Indication: PROSTATE CANCER METASTATIC
     Dosage: 250 ML, SINGLE, INTRAVENOUS
     Route: 042
     Dates: start: 20120220, end: 20120220
  2. PRILOSEC [Concomitant]
  3. ZOLOFT [Concomitant]
  4. OXYCODONE HYDROCHLORIDE [Concomitant]
  5. ADDERALL [Concomitant]
  6. PREDNISONE [Concomitant]

REACTIONS (9)
  - Scrotal oedema [None]
  - Hypokalaemia [None]
  - Renal failure acute [None]
  - Oedema peripheral [None]
  - Constipation [None]
  - Weight increased [None]
  - Microcytic anaemia [None]
  - Penile swelling [None]
  - Anaemia of chronic disease [None]
